FAERS Safety Report 8521483 (Version 3)
Quarter: 2013Q2

REPORT INFORMATION
  Report Type: Spontaneous
  Country: US (occurrence: US)
  Receive Date: 20120419
  Receipt Date: 20130425
  Transmission Date: 20140414
  Serious: Yes (Life-Threatening, Hospitalization, Other)
  Sender: FDA-Public Use
  Company Number: US-BAYER-2011-054873

PATIENT
  Age: 29 Year
  Sex: Female
  Weight: 83.9 kg

DRUGS (11)
  1. YAZ [Suspect]
     Indication: CONTRACEPTION
     Dosage: UNK
     Dates: start: 200111, end: 200711
  2. YASMIN [Suspect]
     Indication: CONTRACEPTION
     Dosage: UNK
     Route: 048
     Dates: start: 200111, end: 200711
  3. CHOLESTEROL- AND TRIGLYCERIDE REDUCERS [Concomitant]
  4. CHANTIX [Concomitant]
  5. RELPAX [Concomitant]
  6. FLUCONAZOLE [Concomitant]
  7. TRICOR [Concomitant]
  8. ZOLPIDEM [Concomitant]
  9. OMEGA 3 FATTY ACIDS [Concomitant]
  10. ENDOCET [Concomitant]
  11. DIAZEPAM [Concomitant]

REACTIONS (6)
  - Pancreatitis acute [Unknown]
  - Cholecystitis chronic [None]
  - Cholecystectomy [Unknown]
  - Pancreatitis [None]
  - Injury [Unknown]
  - Pain [Unknown]
